FAERS Safety Report 13767476 (Version 1)
Quarter: 2017Q3

REPORT INFORMATION
  Report Type: Spontaneous
  Country: CA (occurrence: CA)
  Receive Date: 20170719
  Receipt Date: 20170719
  Transmission Date: 20171127
  Serious: Yes (Hospitalization, Other)
  Sender: FDA-Public Use
  Company Number: CA-ABBVIE-17K-028-2042444-00

PATIENT
  Sex: Male

DRUGS (1)
  1. HUMIRA [Suspect]
     Active Substance: ADALIMUMAB
     Indication: PRODUCT USED FOR UNKNOWN INDICATION
     Route: 058
     Dates: start: 201510

REACTIONS (15)
  - Pseudomonal sepsis [Recovered/Resolved]
  - Cystitis pseudomonal [Recovered/Resolved]
  - Chronic inflammatory demyelinating polyradiculoneuropathy [Not Recovered/Not Resolved]
  - Diabetes mellitus [Unknown]
  - Pneumonia [Recovered/Resolved]
  - Nosocomial infection [Unknown]
  - Seizure [Unknown]
  - Paralysis [Recovered/Resolved]
  - Sputum discoloured [Not Recovered/Not Resolved]
  - Cough [Not Recovered/Not Resolved]
  - Pseudomonas infection [Recovered/Resolved]
  - Haemorrhage [Unknown]
  - Ankylosing spondylitis [Not Recovered/Not Resolved]
  - Staphylococcal infection [Unknown]
  - Infection susceptibility increased [Not Recovered/Not Resolved]

NARRATIVE: CASE EVENT DATE: 201510
